FAERS Safety Report 5586836-2 (Version None)
Quarter: 2008Q1

REPORT INFORMATION
  Report Type: 
  Country: None (occurrence: None)
  Receive Date: 20080110
  Receipt Date: 20080104
  Transmission Date: 20080703
  Serious: Yes (Other)
  Sender: FDA-Public Use
  Company Number: US-ASTRAZENECA-2008UW00376

PATIENT
  Sex: Female

DRUGS (2)
  1. ARIMIDEX [Suspect]
     Indication: BREAST CANCER METASTATIC
  2. ARIDIA [Concomitant]

REACTIONS (6)
  - ASTHENIA [None]
  - HEPATIC ENZYME INCREASED [None]
  - HEPATIC LESION [None]
  - METASTASES TO SPINE [None]
  - NAUSEA [None]
  - TUMOUR MARKER INCREASED [None]
